FAERS Safety Report 21795007 (Version 1)
Quarter: 2022Q4

REPORT INFORMATION
  Report Type: Spontaneous
  Country: US (occurrence: None)
  Receive Date: 20221228
  Receipt Date: 20221228
  Transmission Date: 20230113
  Serious: Yes (Hospitalization)
  Sender: FDA-Public Use
  Company Number: None

PATIENT
  Age: 67 Year
  Sex: Female

DRUGS (2)
  1. KISQALI [Suspect]
     Active Substance: RIBOCICLIB
     Dosage: OTHER FREQUENCY : 3W ON 1W OFF;?
     Route: 048
  2. FULLVESTRANT [Concomitant]

REACTIONS (3)
  - COVID-19 [None]
  - Cough [None]
  - Therapy interrupted [None]
